FAERS Safety Report 13998514 (Version 1)
Quarter: 2017Q3

REPORT INFORMATION
  Report Type: Spontaneous
  Country: US (occurrence: US)
  Receive Date: 20170921
  Receipt Date: 20170921
  Transmission Date: 20171128
  Serious: No
  Sender: FDA-Public Use
  Company Number: US-TEIKOKU PHARMA USA-TPU2017-00555

PATIENT
  Sex: Female

DRUGS (3)
  1. LIDODERM [Suspect]
     Active Substance: LIDOCAINE
     Indication: SACROILIITIS
     Dosage: APPLY 1/2 TO 2 PATCHES ON THE BACK, SOMETIMES CUTS ONE PATCH IN HALF AND PLACES HALF OF A PATCH ON E
     Route: 061
     Dates: start: 1985
  2. PROTON PUMP INHIBITOR [Concomitant]
     Active Substance: UNSPECIFIED INGREDIENT
  3. LIDODERM [Suspect]
     Active Substance: LIDOCAINE
     Indication: OSTEOARTHRITIS

REACTIONS (4)
  - Drug ineffective for unapproved indication [Unknown]
  - Irritable bowel syndrome [Unknown]
  - Expired product administered [Not Recovered/Not Resolved]
  - Dizziness [Recovered/Resolved]

NARRATIVE: CASE EVENT DATE: 1985
